FAERS Safety Report 7422098-9 (Version None)
Quarter: 2011Q2

REPORT INFORMATION
  Report Type: 
  Country: None (occurrence: None)
  Receive Date: 20110418
  Receipt Date: 20110411
  Transmission Date: 20111010
  Serious: Yes (Other)
  Sender: FDA-Public Use
  Company Number: JP-MERCK-1104USA02123

PATIENT
  Age: 79 Year
  Sex: Female

DRUGS (5)
  1. PREDONINE [Concomitant]
     Route: 065
  2. NIACINAMIDE [Suspect]
     Route: 048
  3. PEPCID RPD [Suspect]
     Route: 048
     Dates: start: 20110220, end: 20110405
  4. BAKTAR [Suspect]
     Route: 048
  5. MINOMYCIN [Suspect]
     Route: 048

REACTIONS (3)
  - PANCYTOPENIA [None]
  - ASTHENIA [None]
  - BLOOD CREATINE PHOSPHOKINASE INCREASED [None]
